FAERS Safety Report 7832216-6 (Version None)
Quarter: 2011Q4

REPORT INFORMATION
  Report Type: 
  Country: None (occurrence: None)
  Receive Date: 20111022
  Receipt Date: 20111018
  Transmission Date: 20120403
  Serious: No
  Sender: FDA-Public Use
  Company Number: US-BAYER-2011-101796

PATIENT
  Age: 46 Year
  Sex: Female
  Weight: 53.515 kg

DRUGS (4)
  1. BETASERON [Suspect]
     Dosage: 1 ML, QOD
     Route: 058
  2. ABREVA [Concomitant]
  3. VITAMIN D [Concomitant]
  4. CALCIUM CARBONATE [Concomitant]

REACTIONS (1)
  - ORAL HERPES [None]
